FAERS Safety Report 18192128 (Version 1)
Quarter: 2020Q3

REPORT INFORMATION
  Report Type: Spontaneous
  Country: US (occurrence: US)
  Receive Date: 20200824
  Receipt Date: 20200824
  Transmission Date: 20201103
  Serious: Yes (Other)
  Sender: FDA-Public Use
  Company Number: None

PATIENT
  Age: 60 Year
  Sex: Female
  Weight: 74.25 kg

DRUGS (9)
  1. ZYRTEC [Concomitant]
     Active Substance: CETIRIZINE HYDROCHLORIDE
  2. DESVENLAFAXINE SUCC ER [Suspect]
     Active Substance: DESVENLAFAXINE SUCCINATE
     Indication: INSOMNIA
     Dosage: ?          QUANTITY:1 TABLET(S);?
     Route: 048
  3. GENERIC VALTREX [Concomitant]
  4. QVAR [Concomitant]
     Active Substance: BECLOMETHASONE DIPROPIONATE
  5. ARMOUR THYROID [Concomitant]
     Active Substance: THYROID, PORCINE
  6. VITAMIN D3 [Concomitant]
     Active Substance: CHOLECALCIFEROL
  7. FLONASE [Concomitant]
     Active Substance: FLUTICASONE PROPIONATE
  8. DESVENLAFAXINE SUCC ER [Suspect]
     Active Substance: DESVENLAFAXINE SUCCINATE
     Indication: ANXIETY
     Dosage: ?          QUANTITY:1 TABLET(S);?
     Route: 048
  9. MULTIVITAMIN [Concomitant]
     Active Substance: VITAMINS

REACTIONS (3)
  - Fall [None]
  - Head injury [None]
  - Slow response to stimuli [None]

NARRATIVE: CASE EVENT DATE: 20200702
